FAERS Safety Report 10475557 (Version 1)
Quarter: 2014Q3

REPORT INFORMATION
  Report Type: Report from Study
  Country: US (occurrence: US)
  Receive Date: 20140925
  Receipt Date: 20140925
  Transmission Date: 20150326
  Serious: No
  Sender: FDA-Public Use
  Company Number: US-ALEXION-A200901513

PATIENT
  Sex: Male

DRUGS (2)
  1. PREDNISONE. [Concomitant]
     Active Substance: PREDNISONE
     Indication: PRODUCT USED FOR UNKNOWN INDICATION
     Dosage: UNK
  2. SOLIRIS [Suspect]
     Active Substance: ECULIZUMAB
     Indication: PAROXYSMAL NOCTURNAL HAEMOGLOBINURIA
     Dosage: UNK
     Route: 042

REACTIONS (32)
  - Quality of life decreased [Unknown]
  - Depressed mood [Unknown]
  - Haemolysis [Unknown]
  - Insomnia [Unknown]
  - Activities of daily living impaired [Unknown]
  - Malaise [Unknown]
  - Abdominal pain [Unknown]
  - Asthenia [Unknown]
  - Cognitive disorder [Unknown]
  - Snoring [Unknown]
  - Hepatic enzyme abnormal [Unknown]
  - Feeling abnormal [Unknown]
  - Dysphagia [Unknown]
  - Hyperlipidaemia [Unknown]
  - Psoriasis [Unknown]
  - Depressed level of consciousness [Unknown]
  - Memory impairment [Unknown]
  - Transfusion [Unknown]
  - Iron deficiency [Unknown]
  - Stress [Unknown]
  - Tenderness [Unknown]
  - Dyspnoea [Unknown]
  - Oedema peripheral [Unknown]
  - Back pain [Unknown]
  - Hypertension [Unknown]
  - Influenza like illness [Unknown]
  - Disturbance in attention [Unknown]
  - Flank pain [Unknown]
  - Anaemia [Unknown]
  - Headache [Unknown]
  - Haemoglobinuria [Unknown]
  - Fatigue [Unknown]
